FAERS Safety Report 22517755 (Version 2)
Quarter: 2023Q2

REPORT INFORMATION
  Report Type: Report from Study
  Country: JP (occurrence: JP)
  Receive Date: 20230604
  Receipt Date: 20230613
  Transmission Date: 20230722
  Serious: Yes (Death, Hospitalization, Other)
  Sender: FDA-Public Use
  Company Number: JP-KYOWAKIRIN-2019AKK014771

PATIENT
  Age: 85 Year
  Sex: Male

DRUGS (11)
  1. DARBEPOETIN ALFA [Suspect]
     Active Substance: DARBEPOETIN ALFA
     Indication: Myelodysplastic syndrome
     Dosage: 240 MICROGRAM, QWK
     Route: 058
     Dates: start: 20210222, end: 20210506
  2. DARBEPOETIN ALFA [Suspect]
     Active Substance: DARBEPOETIN ALFA
     Dosage: 240 MICROGRAM, QWK
     Route: 058
     Dates: start: 20180419, end: 20190328
  3. DARBEPOETIN ALFA [Suspect]
     Active Substance: DARBEPOETIN ALFA
     Dosage: 240 MICROGRAM, QWK
     Route: 058
     Dates: start: 20200414, end: 20200901
  4. DARBEPOETIN ALFA [Suspect]
     Active Substance: DARBEPOETIN ALFA
     Dosage: 240 MICROGRAM, QWK
     Route: 058
     Dates: start: 20200915, end: 20210126
  5. FUROSEMIDE [Concomitant]
     Active Substance: FUROSEMIDE
     Indication: Oedema
     Dosage: 5 MILLIGRAM
     Route: 065
     Dates: end: 20210512
  6. CANRENOATE POTASSIUM [Concomitant]
     Active Substance: CANRENOATE POTASSIUM
     Indication: Oedema
     Dosage: 600 MILLIGRAM
     Route: 065
     Dates: end: 20210527
  7. ISCOTIN [Concomitant]
     Active Substance: ISONIAZID
     Indication: Pulmonary tuberculosis
     Dosage: 300 MILLIGRAM
     Route: 048
     Dates: start: 20190329, end: 20200327
  8. PYRAZINAMIDE [Concomitant]
     Active Substance: PYRAZINAMIDE
     Indication: Pulmonary tuberculosis
     Dosage: 0.8 GRAM
     Route: 048
     Dates: start: 20190329, end: 20200327
  9. ACOALAN [Concomitant]
     Indication: Disseminated intravascular coagulation
     Dosage: 1800 INTERNATIONAL UNIT
     Route: 042
     Dates: start: 20210420, end: 20210427
  10. EBUTOL [Concomitant]
     Active Substance: ETHAMBUTOL HYDROCHLORIDE
     Indication: Pulmonary tuberculosis
     Dosage: 500 MILLIGRAM
     Route: 048
     Dates: start: 20190329, end: 20200327
  11. RIFADIN [Concomitant]
     Active Substance: RIFAMPIN
     Indication: Pulmonary tuberculosis
     Dosage: 450 MILLIGRAM
     Route: 048
     Dates: start: 20190329, end: 20200327

REACTIONS (10)
  - Haemochromatosis [Fatal]
  - Hepatic failure [Fatal]
  - Disseminated intravascular coagulation [Unknown]
  - Pulmonary tuberculosis [Recovered/Resolved]
  - Urinary tract infection [Recovering/Resolving]
  - Femur fracture [Recovered/Resolved]
  - Fall [Recovered/Resolved]
  - Asthenia [Recovered/Resolved]
  - Dizziness [Recovered/Resolved]
  - Gastrooesophageal reflux disease [Unknown]

NARRATIVE: CASE EVENT DATE: 20190328
